FAERS Safety Report 21892017 (Version 2)
Quarter: 2023Q1

REPORT INFORMATION
  Report Type: Report from Study
  Country: US (occurrence: US)
  Receive Date: 20230120
  Receipt Date: 20230330
  Transmission Date: 20230417
  Serious: No
  Sender: FDA-Public Use
  Company Number: US-ABBVIE-4277402

PATIENT
  Age: 75 Year
  Sex: Female

DRUGS (1)
  1. IMBRUVICA [Suspect]
     Active Substance: IBRUTINIB
     Indication: Lymphocytic leukaemia
     Route: 048
     Dates: start: 201809

REACTIONS (4)
  - Drug hypersensitivity [Unknown]
  - Diarrhoea [Unknown]
  - Abdominal pain upper [Unknown]
  - Viral infection [Unknown]

NARRATIVE: CASE EVENT DATE: 20230301
